FAERS Safety Report 9026783 (Version 4)
Quarter: 2014Q2

REPORT INFORMATION
  Report Type: Spontaneous
  Country: US (occurrence: US)
  Receive Date: 20130123
  Receipt Date: 20140527
  Transmission Date: 20141212
  Serious: Yes (Other)
  Sender: FDA-Public Use
  Company Number: US-ASTELLAS-2013US000671

PATIENT
  Age: 77 Year
  Sex: Female
  Weight: 123 kg

DRUGS (12)
  1. MYRBETRIQ [Suspect]
     Indication: HYPERTONIC BLADDER
     Route: 048
     Dates: start: 20121120, end: 20130813
  2. MYRBETRIQ [Suspect]
     Route: 048
     Dates: start: 20130814, end: 20140107
  3. INDERAL [Suspect]
     Indication: HYPERTENSION
     Route: 065
  4. INDERAL [Suspect]
     Route: 065
     Dates: end: 20130123
  5. ANTIHYPERTENSIVES [Concomitant]
     Indication: HYPERTENSION
     Route: 065
  6. PROPANOLOL                         /00030001/ [Concomitant]
     Indication: PRODUCT USED FOR UNKNOWN INDICATION
     Route: 065
  7. GLYBURIDE [Concomitant]
     Indication: PRODUCT USED FOR UNKNOWN INDICATION
     Dosage: 0.5 DF, BID, IN AM AND PM
     Route: 065
  8. OMEGA 3 FISH OIL [Concomitant]
     Indication: PRODUCT USED FOR UNKNOWN INDICATION
     Route: 065
  9. VIT D [Concomitant]
     Indication: PRODUCT USED FOR UNKNOWN INDICATION
     Dosage: 1000 IU, UNKNOWN/D, AT NIGHT
     Route: 065
  10. TOPROL [Concomitant]
     Indication: HYPERTENSION
     Route: 065
  11. OCEAN NASAL [Concomitant]
     Indication: PRODUCT USED FOR UNKNOWN INDICATION
     Route: 045
  12. ECO TEARS [Concomitant]
     Indication: PRODUCT USED FOR UNKNOWN INDICATION
     Route: 065

REACTIONS (16)
  - Skin cancer [Unknown]
  - Fall [Unknown]
  - Fungal infection [Unknown]
  - Cellulitis [Unknown]
  - Onychomycosis [Unknown]
  - Staphylococcal infection [Unknown]
  - Cystitis [Unknown]
  - Hypotension [Not Recovered/Not Resolved]
  - Atrial tachycardia [Recovering/Resolving]
  - Joint injury [Unknown]
  - Formication [Unknown]
  - Monarthritis [Unknown]
  - Nausea [Unknown]
  - Dizziness [Unknown]
  - Urinary incontinence [Unknown]
  - Drug ineffective [Unknown]
